FAERS Safety Report 20376274 (Version 1)
Quarter: 2022Q1

REPORT INFORMATION
  Report Type: Spontaneous
  Country: US (occurrence: US)
  Receive Date: 20220125
  Receipt Date: 20220125
  Transmission Date: 20220423
  Serious: No
  Sender: FDA-Public Use
  Company Number: US-TAKEDA-2022TUS004452

PATIENT
  Sex: Female
  Weight: 64 kg

DRUGS (2)
  1. DEXILANT [Suspect]
     Active Substance: DEXLANSOPRAZOLE
     Indication: Gastrooesophageal reflux disease
     Dosage: UNK UNK, QD
     Route: 048
  2. LINZESS [Concomitant]
     Active Substance: LINACLOTIDE
     Dosage: 290 MILLIGRAM, QD
     Route: 065

REACTIONS (6)
  - Renal disorder [Unknown]
  - Therapy interrupted [Unknown]
  - Extra dose administered [Unknown]
  - Abdominal pain upper [Unknown]
  - Pain [Unknown]
  - Adverse event [Unknown]
